FAERS Safety Report 7910289-X (Version None)
Quarter: 2011Q4

REPORT INFORMATION
  Report Type: 
  Country: None (occurrence: None)
  Receive Date: 20111111
  Receipt Date: 20111104
  Transmission Date: 20120403
  Serious: Yes (Hospitalization)
  Sender: FDA-Public Use
  Company Number: DE-US-EMD SERONO, INC.-7073620

PATIENT
  Sex: Female
  Weight: 85 kg

DRUGS (1)
  1. REBIF [Suspect]
     Indication: MULTIPLE SCLEROSIS
     Route: 058
     Dates: start: 20010101, end: 20110201

REACTIONS (4)
  - PLACENTA PRAEVIA HAEMORRHAGE [None]
  - LIVER DISORDER [None]
  - PREMATURE DELIVERY [None]
  - FOETAL EXPOSURE DURING PREGNANCY [None]
